FAERS Safety Report 9236269 (Version 1)
Quarter: 2013Q2

REPORT INFORMATION
  Report Type: Spontaneous
  Country: US (occurrence: US)
  Receive Date: 20130417
  Receipt Date: 20130417
  Transmission Date: 20140414
  Serious: Yes (Hospitalization, Disabling, Other)
  Sender: FDA-Public Use
  Company Number: US-009507513-1203USA02988

PATIENT
  Sex: Male
  Weight: 126.1 kg

DRUGS (6)
  1. FOSAMAX [Suspect]
     Indication: OSTEOPOROSIS
     Dosage: 70 MG, QW
     Route: 048
     Dates: start: 2002, end: 2011
  2. METICORTEN [Concomitant]
     Indication: MYASTHENIA GRAVIS
     Dosage: 15 TABS FOR 30 DAY SUPPLY
     Route: 048
     Dates: start: 20060626, end: 20061023
  3. METICORTEN [Concomitant]
     Dosage: VARIED FROM 5 MG TO 20 MG TABLETS
     Route: 048
     Dates: start: 20060924, end: 20070419
  4. ALENDRONATE SODIUM [Suspect]
     Dosage: 70 MG, UNK
     Route: 048
     Dates: start: 20080407
  5. MESTINON [Concomitant]
     Indication: MYASTHENIA GRAVIS
     Dosage: 180 MG, QD
     Route: 048
     Dates: start: 19920403
  6. CELLCEPT [Concomitant]
     Indication: MYASTHENIA GRAVIS
     Dosage: 400 MG, QD
     Dates: start: 1987

REACTIONS (50)
  - Femur fracture [Not Recovered/Not Resolved]
  - Surgery [Not Recovered/Not Resolved]
  - Lumbar vertebral fracture [Not Recovered/Not Resolved]
  - Fall [Unknown]
  - Hypertension [Unknown]
  - Hyperglycaemia [Unknown]
  - Tachycardia [Recovered/Resolved]
  - Pilonidal cyst [Unknown]
  - Foot fracture [Unknown]
  - Femur fracture [Unknown]
  - Depression [Unknown]
  - Cellulitis [Unknown]
  - Abscess limb [Unknown]
  - Fracture nonunion [Unknown]
  - Pilonidal cyst [Unknown]
  - Foot deformity [Not Recovered/Not Resolved]
  - Cataract subcapsular [Unknown]
  - Eye disorder [Unknown]
  - Otitis externa [Unknown]
  - Otitis media acute [Unknown]
  - Pilonidal cyst [Unknown]
  - Tinea versicolour [Unknown]
  - Pilonidal cyst [Unknown]
  - Low turnover osteopathy [Unknown]
  - Strabismus [Unknown]
  - Strabismus [Unknown]
  - Pollakiuria [Unknown]
  - Anxiety [Unknown]
  - Blood glucose increased [Unknown]
  - Eyelid disorder [Unknown]
  - Hypercholesterolaemia [Unknown]
  - Diabetes mellitus [Unknown]
  - Vitamin B12 deficiency [Unknown]
  - Vitamin D deficiency [Unknown]
  - Dyspnoea [Unknown]
  - Cough [Unknown]
  - Chest pain [Unknown]
  - Fatigue [Unknown]
  - Lung disorder [Unknown]
  - Diabetic foot [Unknown]
  - Spinal cord compression [Unknown]
  - Sleep disorder [Unknown]
  - Oxygen saturation abnormal [Unknown]
  - Snoring [Unknown]
  - Choking [Unknown]
  - Depression [Unknown]
  - Gastrooesophageal reflux disease [Unknown]
  - Back pain [Not Recovered/Not Resolved]
  - Rash [Unknown]
  - Diarrhoea [Unknown]
